FAERS Safety Report 9798531 (Version 1)
Quarter: 2014Q1

REPORT INFORMATION
  Report Type: Spontaneous
  Country: US (occurrence: US)
  Receive Date: 20140106
  Receipt Date: 20140106
  Transmission Date: 20141002
  Serious: No
  Sender: FDA-Public Use
  Company Number: US-ROXANE LABORATORIES, INC.-2014-RO-00002RO

PATIENT
  Age: 68 Year
  Sex: Female

DRUGS (1)
  1. CALCIUM ACETATE [Suspect]
     Indication: BLOOD PHOSPHORUS INCREASED
     Route: 048

REACTIONS (1)
  - Constipation [Not Recovered/Not Resolved]
